FAERS Safety Report 9159871 (Version 1)
Quarter: 2013Q1

REPORT INFORMATION
  Report Type: Spontaneous
  Country: US (occurrence: None)
  Receive Date: 20130220
  Receipt Date: 20130220
  Transmission Date: 20140127
  Serious: Yes (Disabling, Other)
  Sender: FDA-Public Use
  Company Number: 2013/031

PATIENT
  Age: 59 Year
  Sex: Male
  Weight: 92.52 kg

DRUGS (1)
  1. AMLODIPINE [Suspect]
     Indication: HYPERTENSION
     Route: 048
     Dates: start: 20060720, end: 20130125

REACTIONS (11)
  - Dizziness [None]
  - Depressed mood [None]
  - Anger [None]
  - Agitation [None]
  - Feeling abnormal [None]
  - Visual impairment [None]
  - Hypoaesthesia [None]
  - Back pain [None]
  - Migraine [None]
  - Arthritis [None]
  - Mood swings [None]
